FAERS Safety Report 15739126 (Version 1)
Quarter: 2018Q4

REPORT INFORMATION
  Report Type: Spontaneous
  Country: CA (occurrence: CA)
  Receive Date: 20181219
  Receipt Date: 20181219
  Transmission Date: 20190205
  Serious: Yes (Other)
  Sender: FDA-Public Use
  Company Number: CA-BAYER-2018-233127

PATIENT
  Age: 66 Year
  Sex: Female

DRUGS (16)
  1. MOXIFLOXACIN ORAL [Suspect]
     Active Substance: MOXIFLOXACIN
     Indication: PHARYNGITIS
     Dosage: 500 MG
  2. CIPRO [Concomitant]
     Active Substance: CIPROFLOXACIN HYDROCHLORIDE
  3. AMLODIPINE BESILATE [Concomitant]
     Active Substance: AMLODIPINE BESYLATE
     Dosage: 5 MG
  4. PREDNISONE. [Concomitant]
     Active Substance: PREDNISONE
     Dosage: 15 UNK
  5. BACTRIM [Concomitant]
     Active Substance: SULFAMETHOXAZOLE\TRIMETHOPRIM
  6. PREDNISONE. [Concomitant]
     Active Substance: PREDNISONE
     Dosage: 25 UNK
  7. PREDNISONE. [Concomitant]
     Active Substance: PREDNISONE
     Dosage: 25.0 MG
  8. PREDNISONE. [Concomitant]
     Active Substance: PREDNISONE
     Dosage: 15 MG, QD
  9. FORMOTEROL FUMARATE [Concomitant]
     Active Substance: FORMOTEROL FUMARATE
  10. LEVAQUIN [Concomitant]
     Active Substance: LEVOFLOXACIN
  11. PREDNISONE. [Concomitant]
     Active Substance: PREDNISONE
     Dosage: 50 UNK
  12. PREDNISONE. [Concomitant]
     Active Substance: PREDNISONE
     Dosage: 10 UNK
  13. OMALIZUMAB. [Suspect]
     Active Substance: OMALIZUMAB
     Indication: ASTHMA
     Dosage: 300 MG, Q2WK
     Route: 058
  14. OTEZLA [Suspect]
     Active Substance: APREMILAST
     Dosage: 30 MG, BID
     Route: 048
  15. PREDNISONE. [Concomitant]
     Active Substance: PREDNISONE
     Dosage: 12.5 UNK
  16. PREDNISONE. [Concomitant]
     Active Substance: PREDNISONE
     Dosage: 20 UNK

REACTIONS (45)
  - Nasal congestion [None]
  - Respiratory disorder [None]
  - Sense of oppression [None]
  - Sneezing [None]
  - Sputum discoloured [None]
  - Vision blurred [None]
  - Erythema [None]
  - Heart rate increased [None]
  - Injection site vesicles [None]
  - Lung infection pseudomonal [None]
  - Pneumonitis [None]
  - Respiratory tract infection [None]
  - Rhinorrhoea [None]
  - Headache [None]
  - Injection site pain [None]
  - Pharyngitis bacterial [None]
  - Productive cough [None]
  - Sinusitis [None]
  - Abdominal discomfort [None]
  - Joint injury [None]
  - Nausea [None]
  - Somnolence [None]
  - Weight increased [None]
  - Corneal oedema [Recovered/Resolved]
  - Dyspnoea [None]
  - Gastroenteritis viral [None]
  - Hypersensitivity [None]
  - Increased bronchial secretion [None]
  - Insomnia [None]
  - Throat irritation [None]
  - Cough [None]
  - Nasopharyngitis [None]
  - Oedema [None]
  - Oropharyngeal pain [None]
  - Vomiting [None]
  - Weight decreased [None]
  - Wheezing [None]
  - Dizziness [None]
  - Dysphonia [None]
  - Skin lesion [None]
  - Spirometry abnormal [None]
  - Wound [None]
  - Fall [None]
  - Fatigue [None]
  - Joint dislocation [None]
